FAERS Safety Report 4866617-5 (Version None)
Quarter: 2005Q4

REPORT INFORMATION
  Report Type: 
  Country: None (occurrence: None)
  Receive Date: 20051221
  Receipt Date: 20051111
  Transmission Date: 20060501
  Serious: Yes (Hospitalization, Other)
  Sender: FDA-Public Use
  Company Number: 2005143910

PATIENT
  Sex: Male

DRUGS (11)
  1. VIAGRA [Suspect]
     Indication: ILL-DEFINED DISORDER
     Dosage: 50 MG
  2. VIAGRA [Suspect]
  3. TOPROL-XL [Concomitant]
  4. AVANDIA [Concomitant]
  5. ZOCOR [Concomitant]
  6. GLUCOPHAGE [Concomitant]
  7. ALL OTHER THERAPEUTIC PRODUCTS [Concomitant]
  8. NORVASC [Concomitant]
  9. AMARYL [Concomitant]
  10. PLAVIX [Concomitant]
  11. TYLENOL PM (DIPHENHYDRAMINE, PARACETAMOL) [Concomitant]

REACTIONS (7)
  - CEREBROVASCULAR ACCIDENT [None]
  - DRUG INEFFECTIVE [None]
  - DRY MOUTH [None]
  - HEADACHE [None]
  - PENILE HAEMORRHAGE [None]
  - PROSTATE EXAMINATION ABNORMAL [None]
  - URINE OUTPUT INCREASED [None]
